FAERS Safety Report 6337630-6 (Version None)
Quarter: 2009Q3

REPORT INFORMATION
  Report Type: 
  Country: None (occurrence: None)
  Receive Date: 20090902
  Receipt Date: 20090821
  Transmission Date: 20100115
  Serious: Yes (Death)
  Sender: FDA-Public Use
  Company Number: US-ELI_LILLY_AND_COMPANY-US200907006133

PATIENT
  Sex: Male

DRUGS (1)
  1. ZYPREXA [Suspect]
     Dates: start: 20030201, end: 20030201

REACTIONS (3)
  - ADVERSE DRUG REACTION [None]
  - DEATH [None]
  - MOROSE [None]
